FAERS Safety Report 7562769-7 (Version None)
Quarter: 2011Q2

REPORT INFORMATION
  Report Type: 
  Country: None (occurrence: None)
  Receive Date: 20110615
  Receipt Date: 20110608
  Transmission Date: 20111010
  Serious: Yes (Death)
  Sender: FDA-Public Use
  Company Number: WAES 1007PHL00010

PATIENT
  Age: 49 Year
  Sex: Male

DRUGS (7)
  1. VYTORIN [Suspect]
     Dosage: 10-20 MG/DAILY PO
     Route: 048
  2. ASPIRIN [Concomitant]
  3. FENOFIBRATE [Concomitant]
  4. PROPYLTHIOURACIL [Concomitant]
  5. GLIMEPIRIDE [Concomitant]
  6. PIOGLITAZONE HCL [Concomitant]
  7. SIMVASTATIN [Concomitant]

REACTIONS (1)
  - ACUTE MYOCARDIAL INFARCTION [None]
